FAERS Safety Report 6590732-1 (Version None)
Quarter: 2010Q1

REPORT INFORMATION
  Report Type: 
  Country: None (occurrence: None)
  Receive Date: 20100219
  Receipt Date: 20100215
  Transmission Date: 20100710
  Serious: Yes (Other)
  Sender: FDA-Public Use
  Company Number: JP-WYE-H13577910

PATIENT
  Sex: Female

DRUGS (2)
  1. PREMARIN [Suspect]
     Indication: AMENORRHOEA
     Route: 048
  2. LUTORAL [Concomitant]
     Indication: AMENORRHOEA
     Dosage: UNKNOWN
     Route: 048

REACTIONS (1)
  - BREAST CANCER RECURRENT [None]
